FAERS Safety Report 9264319 (Version 1)
Quarter: 2013Q2

REPORT INFORMATION
  Report Type: Spontaneous
  Country: US (occurrence: US)
  Receive Date: 20130430
  Receipt Date: 20130430
  Transmission Date: 20140414
  Serious: No
  Sender: FDA-Public Use
  Company Number: US-009507513-1304USA014216

PATIENT
  Sex: Male

DRUGS (9)
  1. VICTRELIS [Suspect]
     Indication: HEPATITIS C
     Dosage: 4 DF, TID
     Route: 048
     Dates: start: 201302
  2. RIBASPHERE [Suspect]
  3. PEGASYS [Suspect]
  4. ONGLYZA [Concomitant]
  5. AMLODIPINE [Concomitant]
  6. GLYBURIDE [Concomitant]
  7. METOPROLOL [Concomitant]
  8. QUINAPRIL HYDROCHLORIDE [Concomitant]
  9. IBUPROFEN [Concomitant]

REACTIONS (7)
  - Influenza like illness [Unknown]
  - Dysgeusia [Unknown]
  - Dry mouth [Unknown]
  - Dyspnoea [Unknown]
  - Pruritus [Unknown]
  - Rash [Unknown]
  - Weight decreased [Unknown]
